FAERS Safety Report 10259839 (Version 2)
Quarter: 2014Q2

REPORT INFORMATION
  Report Type: Spontaneous
  Country: US (occurrence: US)
  Receive Date: 20140625
  Receipt Date: 20140625
  Transmission Date: 20141212
  Serious: Yes (Hospitalization)
  Sender: FDA-Public Use
  Company Number: US-ASTRAZENECA-2011SE41380

PATIENT
  Age: 67 Year
  Sex: Female

DRUGS (3)
  1. SEROQUEL [Suspect]
     Route: 048
  2. SEROQUEL [Suspect]
     Route: 048
  3. SEROQUEL [Suspect]
     Route: 048

REACTIONS (11)
  - Mania [Unknown]
  - Psychotic disorder [Unknown]
  - Bipolar I disorder [Unknown]
  - Malaise [Unknown]
  - Bipolar disorder [Unknown]
  - Anxiety disorder [Unknown]
  - Psychotic disorder [Unknown]
  - Treatment noncompliance [Unknown]
  - Cognitive disorder [Unknown]
  - Anosognosia [Unknown]
  - Dementia [Unknown]
